FAERS Safety Report 19741591 (Version 6)
Quarter: 2023Q4

REPORT INFORMATION
  Report Type: Report from Study
  Country: US (occurrence: US)
  Receive Date: 20210824
  Receipt Date: 20231009
  Transmission Date: 20240110
  Serious: Yes (Other)
  Sender: FDA-Public Use
  Company Number: US-TAKEDA-US202028922

PATIENT
  Sex: Female

DRUGS (1)
  1. HUMAN IMMUNOGLOBULIN G [Suspect]
     Active Substance: HUMAN IMMUNOGLOBULIN G
     Indication: Immunodeficiency common variable
     Dosage: UNK
     Route: 065

REACTIONS (13)
  - Cerebrovascular accident [Unknown]
  - Infusion site ulcer [Not Recovered/Not Resolved]
  - Depressed mood [Unknown]
  - Hypermobility syndrome [Unknown]
  - Tendon rupture [Unknown]
  - Diarrhoea [Unknown]
  - Infusion site pain [Unknown]
  - Stress [Unknown]
  - Illness [Unknown]
  - Poor quality sleep [Unknown]
  - Trigger finger [Unknown]
  - Pyrexia [Unknown]
  - Fatigue [Unknown]
